FAERS Safety Report 9312473 (Version 3)
Quarter: 2013Q3

REPORT INFORMATION
  Report Type: Spontaneous
  Country: AU (occurrence: AU)
  Receive Date: 20130528
  Receipt Date: 20130704
  Transmission Date: 20140515
  Serious: Yes (Hospitalization)
  Sender: FDA-Public Use
  Company Number: AU-ASTRAZENECA-2013SE36664

PATIENT
  Age: 60 Year
  Sex: Male

DRUGS (7)
  1. CRESTOR [Suspect]
     Indication: HYPERCHOLESTEROLAEMIA
     Route: 048
     Dates: start: 2005, end: 2009
  2. CRESTOR [Suspect]
     Indication: HYPERCHOLESTEROLAEMIA
     Route: 048
     Dates: start: 20091028, end: 20130430
  3. STELAZINE [Suspect]
     Indication: AFFECTIVE DISORDER
     Route: 048
  4. METFORMIN [Concomitant]
     Indication: DIABETES MELLITUS
     Route: 048
  5. ATACAND PLUS [Concomitant]
     Indication: HYPERTENSION
     Dosage: 16+12.5 MG
     Route: 048
     Dates: start: 2009
  6. BECONASE [Concomitant]
     Indication: RHINITIS
     Dosage: DAILY
     Route: 045
     Dates: start: 1995
  7. CARTIA [Concomitant]
     Route: 048
     Dates: start: 2010

REACTIONS (16)
  - Adverse event [Recovered/Resolved]
  - Chest pain [Unknown]
  - Muscle spasms [Recovered/Resolved]
  - Weight increased [Recovering/Resolving]
  - Sleep apnoea syndrome [Not Recovered/Not Resolved]
  - Weight decreased [Unknown]
  - Hepatic steatosis [Recovering/Resolving]
  - Nasal congestion [Unknown]
  - Hepatomegaly [Unknown]
  - Fatigue [Unknown]
  - Depression [Unknown]
  - Insomnia [Unknown]
  - Hepatic function abnormal [Recovering/Resolving]
  - Musculoskeletal discomfort [Unknown]
  - Blood triglycerides increased [Not Recovered/Not Resolved]
  - Type 2 diabetes mellitus [Unknown]
